FAERS Safety Report 10182369 (Version 1)
Quarter: 2014Q2

REPORT INFORMATION
  Report Type: Spontaneous
  Country: US (occurrence: None)
  Receive Date: 20140519
  Receipt Date: 20140519
  Transmission Date: 20141212
  Serious: No
  Sender: FDA-Public Use
  Company Number: None

PATIENT
  Sex: 0

DRUGS (12)
  1. SIMVASTATIN [Suspect]
     Indication: BLOOD CHOLESTEROL
     Dosage: 20 MG, 1 TABLET, DAILY, ORAL
     Route: 048
     Dates: end: 20140504
  2. LAMOTRIGINE (LAMICTAL) 200 MG [Concomitant]
  3. PHENOBARBITAL 32.4 MG [Concomitant]
  4. TOPIRAMATE 50 MG [Concomitant]
  5. SIMVASTATIN 20 MG [Concomitant]
  6. TRAMADOL 50 MG [Concomitant]
  7. LEVETIRACETAM 500 MG [Concomitant]
  8. OXYBUTNIN 5 MG [Concomitant]
  9. ADVAIR 50/250 [Concomitant]
  10. VENTOLIN [Concomitant]
  11. FLUTICASONE NASAL SPRAY [Concomitant]
  12. MONTELUKAST [Concomitant]

REACTIONS (3)
  - Back pain [None]
  - Myalgia [None]
  - Sleep disorder [None]
